FAERS Safety Report 7939196-3 (Version None)
Quarter: 2011Q4

REPORT INFORMATION
  Report Type: 
  Country: None (occurrence: None)
  Receive Date: 20111124
  Receipt Date: 20111116
  Transmission Date: 20120403
  Serious: Yes (Other)
  Sender: FDA-Public Use
  Company Number: JP-ROCHE-766810

PATIENT
  Sex: Male
  Weight: 65 kg

DRUGS (12)
  1. XELODA [Suspect]
     Dosage: IT IS ONE ADMINISTERING WEEKLY HOLIDAY MEDICINE FOR TWO WEEKS.
     Route: 048
     Dates: start: 20110105, end: 20110119
  2. XELODA [Suspect]
     Dosage: DOSAGE IS UNCERTAIN.
     Route: 048
     Dates: start: 20110223, end: 20110309
  3. OXALIPLATIN [Suspect]
     Indication: COLON CANCER METASTATIC
     Route: 041
     Dates: start: 20100908, end: 20100908
  4. METOCLOPRAMIDE [Concomitant]
     Indication: PROPHYLAXIS
     Dosage: DOSE FORM: PERORAL AGENT.
     Route: 048
  5. XELODA [Suspect]
     Dosage: ONE ADMINISTERING WEEKLY HOLIDAY MEDICINE FOR TWO WEEKS AND THREE COURSES
     Route: 048
     Dates: start: 20101117, end: 20101222
  6. VOGLIBOSE [Concomitant]
     Route: 048
  7. AZUNOL [Concomitant]
     Dosage: FORM: INCLUDE ASPECT, ROUTE: OROPHARINGEAL, NOTE: UNCERTAIN DOSAGE AND SEVERAL-TIME/DAY
     Route: 050
  8. OXALIPLATIN [Suspect]
     Route: 041
  9. HIRUDOID [Concomitant]
     Dosage: DOSE FORM: OINTMENT AND CREAM
     Route: 062
  10. XELODA [Suspect]
     Indication: COLON CANCER METASTATIC
     Dosage: NAME: XELODA 300, ONE ADMINISTERING WEEKLY HOLIDAY MEDICINE FOR TWO WEEKS AND THREE COURSES
     Route: 048
     Dates: start: 20100830, end: 20101110
  11. KERATINAMIN [Concomitant]
     Dosage: FORM: OINTMENT AND CREAM, DOSAGE IS UNCERTAIN.
     Route: 062
  12. ZOLPIDEM [Concomitant]
     Route: 048

REACTIONS (2)
  - PALMAR-PLANTAR ERYTHRODYSAESTHESIA SYNDROME [None]
  - ONYCHOLYSIS [None]
